FAERS Safety Report 9335366 (Version 4)
Quarter: 2014Q1

REPORT INFORMATION
  Report Type: Spontaneous
  Country: US (occurrence: US)
  Receive Date: 20130606
  Receipt Date: 20140226
  Transmission Date: 20141002
  Serious: Yes (Death, Hospitalization)
  Sender: FDA-Public Use
  Company Number: US-BIOGENIDEC-2013BI047558

PATIENT
  Age: 46 Year
  Sex: Female

DRUGS (2)
  1. TYSABRI [Suspect]
     Indication: MULTIPLE SCLEROSIS
     Route: 042
     Dates: start: 20061206, end: 20130315
  2. VALIUM [Concomitant]

REACTIONS (9)
  - Septic encephalopathy [Unknown]
  - Infection [Unknown]
  - External ear cellulitis [Unknown]
  - Pneumonia aspiration [Unknown]
  - Neutropenia [Recovered/Resolved]
  - Urinary tract infection [Unknown]
  - Renal impairment [Not Recovered/Not Resolved]
  - General symptom [Not Recovered/Not Resolved]
  - Death [Fatal]
